FAERS Safety Report 12404230 (Version 1)
Quarter: 2016Q2

REPORT INFORMATION
  Report Type: Spontaneous
  Country: US (occurrence: US)
  Receive Date: 20160525
  Receipt Date: 20160525
  Transmission Date: 20160815
  Serious: Yes (Other)
  Sender: FDA-Public Use
  Company Number: US-BAYER-2016-093185

PATIENT
  Age: 72 Year
  Sex: Female
  Weight: 49.89 kg

DRUGS (5)
  1. ADCIRCA [Concomitant]
     Active Substance: TADALAFIL
  2. OPSUMIT [Concomitant]
     Active Substance: MACITENTAN
  3. ADEMPAS [Suspect]
     Active Substance: RIOCIGUAT
     Indication: PULMONARY ARTERIAL HYPERTENSION
  4. TYVASO [Suspect]
     Active Substance: TREPROSTINIL
     Indication: PULMONARY ARTERIAL HYPERTENSION
     Dosage: 18-54MCG(3-9BREATHS), FOUR TIMES DAILY
     Route: 055
     Dates: start: 20160112
  5. COUMADIN [Suspect]
     Active Substance: WARFARIN SODIUM

REACTIONS (9)
  - Dyspnoea [None]
  - Fluid retention [None]
  - Peripheral swelling [None]
  - Fall [None]
  - Eye disorder [None]
  - Pain in jaw [None]
  - Dyspnoea exertional [None]
  - Atrial septal defect [None]
  - Drug level decreased [None]
